FAERS Safety Report 7668366-7 (Version None)
Quarter: 2011Q3

REPORT INFORMATION
  Report Type: 
  Country: None (occurrence: None)
  Receive Date: 20110808
  Receipt Date: 20110803
  Transmission Date: 20111222
  Serious: Yes (Other)
  Sender: FDA-Public Use
  Company Number: US-AMGEN-USASP2011036597

PATIENT
  Age: 60 Year
  Sex: Female
  Weight: 95.6 kg

DRUGS (2)
  1. NPLATE [Suspect]
     Indication: IDIOPATHIC THROMBOCYTOPENIC PURPURA
     Dosage: 600 A?G, QWK
     Route: 058
     Dates: start: 20090730
  2. NEXIUM [Concomitant]
     Dosage: 40 MG, UNK
     Route: 048

REACTIONS (5)
  - MALAISE [None]
  - HEADACHE [None]
  - PLATELET COUNT DECREASED [None]
  - FATIGUE [None]
  - ANXIETY [None]
